FAERS Safety Report 4627618-5 (Version None)
Quarter: 2005Q2

REPORT INFORMATION
  Report Type: 
  Country: None (occurrence: None)
  Receive Date: 20050401
  Receipt Date: 20050401
  Transmission Date: 20051028
  Serious: Yes (Disabling)
  Sender: FDA-Public Use
  Company Number: None

PATIENT
  Age: 49 Year
  Sex: Male
  Weight: 95.2554 kg

DRUGS (2)
  1. LEVAQUIN [Suspect]
     Indication: INFECTION PROPHYLAXIS
     Dosage: 1 DAY ORAL
     Route: 048
     Dates: start: 20050313, end: 20050326
  2. AUGMENTIN XR [Suspect]
     Indication: INFECTION PROPHYLAXIS
     Dosage: 2 TWICE DAILY ORAL
     Route: 048
     Dates: start: 20050313, end: 20050326

REACTIONS (1)
  - URTICARIA [None]
